FAERS Safety Report 25908575 (Version 6)
Quarter: 2025Q4

REPORT INFORMATION
  Report Type: Spontaneous
  Country: US (occurrence: US)
  Receive Date: 20251010
  Receipt Date: 20251222
  Transmission Date: 20260118
  Serious: Yes (Death, Hospitalization, Other)
  Sender: GILEAD
  Company Number: US-GILEAD-2025-0731513

PATIENT
  Age: 63 Year
  Sex: Male
  Weight: 76.5 kg

DRUGS (1)
  1. YESCARTA [Suspect]
     Active Substance: AXICABTAGENE CILOLEUCEL
     Indication: Diffuse large B-cell lymphoma
     Dosage: 68 ML
     Route: 065
     Dates: start: 20250926, end: 20250926

REACTIONS (8)
  - Immune effector cell-associated neurotoxicity syndrome [Fatal]
  - Immune effector cell-associated HLH-like syndrome [Fatal]
  - Cardiac arrest [Fatal]
  - Liver function test increased [Unknown]
  - Cytokine release syndrome [Fatal]
  - Disseminated intravascular coagulation [Unknown]
  - Blood bilirubin increased [Unknown]
  - Ventricular tachycardia [Unknown]

NARRATIVE: CASE EVENT DATE: 20250930
